FAERS Safety Report 12173656 (Version 1)
Quarter: 2016Q1

REPORT INFORMATION
  Report Type: Spontaneous
  Country: US (occurrence: None)
  Receive Date: 20160311
  Receipt Date: 20160311
  Transmission Date: 20160526
  Serious: No
  Sender: FDA-Public Use
  Company Number: None

PATIENT
  Age: 36 Year
  Sex: Female
  Weight: 104.33 kg

DRUGS (5)
  1. SKELAXIN [Concomitant]
     Active Substance: METAXALONE
  2. TRAMADOL. [Concomitant]
     Active Substance: TRAMADOL
  3. TRINTELLIX [Suspect]
     Active Substance: VORTIOXETINE HYDROBROMIDE
     Indication: DEPRESSION
     Dosage: 1 PILL 10 MG ONCE DAILY TAKEN BY MOUTH
     Route: 048
     Dates: start: 20160304, end: 20160309
  4. TRILIPEX [Concomitant]
  5. CRESTOR [Concomitant]
     Active Substance: ROSUVASTATIN CALCIUM

REACTIONS (1)
  - Contusion [None]

NARRATIVE: CASE EVENT DATE: 20160309
